FAERS Safety Report 8619351-X (Version None)
Quarter: 2012Q3

REPORT INFORMATION
  Report Type: 
  Country: None (occurrence: None)
  Receive Date: 20120824
  Receipt Date: 20120815
  Transmission Date: 20120928
  Serious: Yes (Disabling)
  Sender: FDA-Public Use
  Company Number: TH-ABBOTT-12P-155-0969263-00

PATIENT
  Sex: Female
  Weight: 55 kg

DRUGS (2)
  1. DARUNAVIR ETHANOLATE [Concomitant]
     Indication: HIV INFECTION
     Route: 048
     Dates: start: 20060530
  2. NORVIR [Suspect]
     Indication: HIV INFECTION
     Route: 048
     Dates: start: 20060530

REACTIONS (1)
  - DEAFNESS UNILATERAL [None]
